FAERS Safety Report 20769409 (Version 2)
Quarter: 2022Q2

REPORT INFORMATION
  Report Type: Report from Study
  Country: IN (occurrence: IN)
  Receive Date: 20220429
  Receipt Date: 20220518
  Transmission Date: 20220721
  Serious: Yes (Death)
  Sender: FDA-Public Use
  Company Number: IN-NOVARTISPH-NVSC2022IN007138

PATIENT
  Age: 76 Year
  Sex: Male

DRUGS (3)
  1. BROLUCIZUMAB [Suspect]
     Active Substance: BROLUCIZUMAB
     Indication: Choroidal neovascularisation
     Dosage: 0.05 ML, QMO
     Route: 047
     Dates: end: 20220423
  2. BROLUCIZUMAB [Suspect]
     Active Substance: BROLUCIZUMAB
     Indication: Choroidal neovascularisation
  3. BROLUCIZUMAB [Suspect]
     Active Substance: BROLUCIZUMAB
     Indication: Neovascular age-related macular degeneration

REACTIONS (4)
  - Death [Fatal]
  - Eye swelling [Not Recovered/Not Resolved]
  - Corneal scar [Not Recovered/Not Resolved]
  - Eye oedema [Not Recovered/Not Resolved]
